FAERS Safety Report 5300014-3 (Version None)
Quarter: 2007Q2

REPORT INFORMATION
  Report Type: 
  Country: None (occurrence: None)
  Receive Date: 20070417
  Receipt Date: 20070406
  Transmission Date: 20071010
  Serious: Yes (Other)
  Sender: FDA-Public Use
  Company Number: JP-PFIZER INC-2006147412

PATIENT
  Sex: Male

DRUGS (4)
  1. LIPITOR [Suspect]
     Indication: HYPERCHOLESTEROLAEMIA
     Dosage: DAILY DOSE:10MG
     Route: 048
     Dates: start: 20040224, end: 20061117
  2. TEPRENONE [Concomitant]
     Indication: REFLUX OESOPHAGITIS
     Dosage: DAILY DOSE:1.5GRAM
     Route: 048
  3. ETIZOLAM [Concomitant]
     Indication: INSOMNIA
     Dosage: DAILY DOSE:.5MCG
     Route: 048
     Dates: start: 20040521
  4. FAMOTIDINE [Concomitant]
     Indication: REFLUX OESOPHAGITIS
     Dosage: DAILY DOSE:40MG
     Route: 048
     Dates: start: 20050121

REACTIONS (6)
  - BLOOD CREATINE PHOSPHOKINASE INCREASED [None]
  - GAIT DISTURBANCE [None]
  - MYALGIA [None]
  - OEDEMA PERIPHERAL [None]
  - PAIN IN EXTREMITY [None]
  - PROTEINURIA [None]
